FAERS Safety Report 12336629 (Version 2)
Quarter: 2016Q2

REPORT INFORMATION
  Report Type: Spontaneous
  Country: JP (occurrence: JP)
  Receive Date: 20160505
  Receipt Date: 20160603
  Transmission Date: 20160815
  Serious: Yes (Hospitalization)
  Sender: FDA-Public Use
  Company Number: JP-NOVOPROD-489810

PATIENT
  Age: 51 Year
  Sex: Male

DRUGS (2)
  1. NOVORAPID [Suspect]
     Active Substance: INSULIN ASPART
     Indication: DIABETES MELLITUS
     Dosage: 30 U, QD
     Route: 058
  2. NOVORAPID [Suspect]
     Active Substance: INSULIN ASPART
     Indication: DIABETES MELLITUS
     Dosage: 180 U, QD
     Route: 058
     Dates: end: 20140727

REACTIONS (2)
  - Diabetes mellitus inadequate control [Recovering/Resolving]
  - Anti-insulin antibody positive [Recovering/Resolving]

NARRATIVE: CASE EVENT DATE: 20140606
